FAERS Safety Report 12877621 (Version 1)
Quarter: 2016Q4

REPORT INFORMATION
  Report Type: Spontaneous
  Country: US (occurrence: US)
  Receive Date: 20161024
  Receipt Date: 20161024
  Transmission Date: 20170207
  Serious: No
  Sender: FDA-Public Use
  Company Number: US-BAYER-2016-202616

PATIENT
  Age: 40 Year
  Sex: Female

DRUGS (1)
  1. MIRENA [Suspect]
     Active Substance: LEVONORGESTREL
     Indication: CONTRACEPTION
     Dosage: 20 MCG/24HR, CONT
     Route: 015
     Dates: start: 201412, end: 20161007

REACTIONS (6)
  - Dizziness [None]
  - Pain in extremity [Not Recovered/Not Resolved]
  - Hormone level abnormal [None]
  - Fatigue [Not Recovered/Not Resolved]
  - Breast pain [Not Recovered/Not Resolved]
  - Hypoaesthesia [None]

NARRATIVE: CASE EVENT DATE: 20161014
